FAERS Safety Report 17803503 (Version 1)
Quarter: 2020Q2

REPORT INFORMATION
  Report Type: Report from Study
  Country: BR (occurrence: BR)
  Receive Date: 20200519
  Receipt Date: 20200519
  Transmission Date: 20200714
  Serious: Yes (Other)
  Sender: FDA-Public Use
  Company Number: NVSC2020BR136640

PATIENT
  Sex: Female

DRUGS (1)
  1. EXELON [Suspect]
     Active Substance: RIVASTIGMINE TARTRATE
     Indication: PRODUCT USED FOR UNKNOWN INDICATION
     Dosage: (CONTINOUS USE), STARTED APPROXIMATELY 4 YEARS AGO
     Route: 065

REACTIONS (2)
  - Concomitant disease aggravated [Unknown]
  - Dementia Alzheimer^s type [Unknown]
